FAERS Safety Report 6153592-9 (Version None)
Quarter: 2009Q2

REPORT INFORMATION
  Report Type: 
  Country: None (occurrence: None)
  Receive Date: 20090409
  Receipt Date: 20090403
  Transmission Date: 20091009
  Serious: Yes (Life-Threatening, Disabling)
  Sender: FDA-Public Use
  Company Number: 2009JP001347

PATIENT
  Age: 45 Year
  Sex: Male
  Weight: 70 kg

DRUGS (13)
  1. FUNGUARD (MICAFUNGIN) INJECTION [Suspect]
     Indication: SYSTEMIC CANDIDA
     Dosage: 300 MG UID/QD, IV DRIP
     Route: 041
     Dates: start: 20090201
  2. ONOACT (LANDIOLOL HYDROCHLORIDE) [Suspect]
     Indication: ATRIAL FIBRILLATION
     Dosage: UNK, PM, IV DRIP
     Route: 041
     Dates: start: 20090209, end: 20090213
  3. ONOACT (LANDIOLOL HYDROCHLORIDE) [Suspect]
     Indication: ATRIAL FIBRILLATION
     Dosage: UNK, PM, IV DRIP
     Route: 041
     Dates: start: 20090216, end: 20090220
  4. DIGOXIN [Suspect]
     Indication: ATRIAL FIBRILLATION
     Dosage: 0.25 MG UID/QD, IV DRIP
     Route: 041
     Dates: start: 20090203
  5. AMBISOME [Suspect]
     Indication: SYSTEMIC CANDIDA
     Dosage: 350 MG, UID/QD, IV DRIP
     Route: 041
     Dates: start: 20090203
  6. ELENTAL (VITAMINS NOS, MINERALS NOS) [Concomitant]
  7. MEROPEN (MEROPENEM TRIHYDRATE) INJECTION [Concomitant]
  8. VANCOMYCIN [Concomitant]
  9. NOREPINEPHRINE BITARTRATE [Concomitant]
  10. PITRESSIN (VASOPRESSIN TANNATE) INJECTION [Concomitant]
  11. NEUPOGEN [Concomitant]
  12. OMEPRAL INJECTION [Concomitant]
  13. PANABATE (GABEXATE MESILATE) [Concomitant]

REACTIONS (11)
  - ATRIOVENTRICULAR BLOCK COMPLETE [None]
  - DISSEMINATED INTRAVASCULAR COAGULATION [None]
  - FEBRILE NEUTROPENIA [None]
  - HAEMODIALYSIS [None]
  - HYPERBILIRUBINAEMIA [None]
  - METABOLIC ACIDOSIS [None]
  - NEUTROPENIA [None]
  - PERICARDITIS [None]
  - RENAL FAILURE ACUTE [None]
  - RENAL INFARCT [None]
  - SPLENIC INFARCTION [None]
